APPROVED DRUG PRODUCT: ZEGERID OTC
Active Ingredient: OMEPRAZOLE; SODIUM BICARBONATE
Strength: 20MG;1.1GM
Dosage Form/Route: CAPSULE;ORAL
Application: N022281 | Product #001
Applicant: RILEY CONSUMER CARE LLC DBA CARLIN CONSUMER HEALTH
Approved: Dec 1, 2009 | RLD: Yes | RS: Yes | Type: OTC